FAERS Safety Report 17989350 (Version 1)
Quarter: 2020Q3

REPORT INFORMATION
  Report Type: Spontaneous
  Country: AR (occurrence: AR)
  Receive Date: 20200707
  Receipt Date: 20200707
  Transmission Date: 20201103
  Serious: Yes (Hospitalization, Other)
  Sender: FDA-Public Use
  Company Number: AR-PFIZER INC-2020225279

PATIENT
  Age: 71 Year
  Sex: Female

DRUGS (3)
  1. ARTRAIT [METHOTREXATE] [Concomitant]
     Active Substance: METHOTREXATE SODIUM
     Dosage: UNK
  2. XELJANZ XR [Suspect]
     Active Substance: TOFACITINIB CITRATE
     Indication: RHEUMATOID ARTHRITIS
     Dosage: 11 MG, 1X/DAY
     Dates: start: 20190417
  3. PROLIA [Suspect]
     Active Substance: DENOSUMAB
     Dosage: EVERY 6 MONTHS

REACTIONS (4)
  - Osteonecrosis [Unknown]
  - Neuralgia [Unknown]
  - Bone sequestrum [Unknown]
  - Oral disorder [Not Recovered/Not Resolved]
